FAERS Safety Report 22700282 (Version 2)
Quarter: 2024Q1

REPORT INFORMATION
  Report Type: Report from Study
  Country: CA (occurrence: CA)
  Receive Date: 20230713
  Receipt Date: 20240101
  Transmission Date: 20240409
  Serious: Yes (Other)
  Sender: FDA-Public Use
  Company Number: CA-JNJFOC-20230672274

PATIENT
  Age: 50 Year
  Sex: Female
  Weight: 127.12 kg

DRUGS (5)
  1. STELARA [Suspect]
     Active Substance: USTEKINUMAB
     Indication: Crohn^s disease
     Route: 041
     Dates: start: 20210320
  2. STELARA [Suspect]
     Active Substance: USTEKINUMAB
     Dosage: LAST DOSE RECEIVED ON 10-MAY-2023
     Route: 058
  3. STELARA [Suspect]
     Active Substance: USTEKINUMAB
     Dosage: IV RELOAD
     Route: 042
  4. STELARA [Suspect]
     Active Substance: USTEKINUMAB
     Route: 058
  5. STELARA [Suspect]
     Active Substance: USTEKINUMAB
     Dosage: DOING A REINDUCTION OF HER STELARA VIA IV
     Route: 042

REACTIONS (6)
  - Chest discomfort [Unknown]
  - Infusion related reaction [Unknown]
  - Feeling abnormal [Recovered/Resolved]
  - Headache [Unknown]
  - Drug ineffective [Unknown]
  - Off label use [Unknown]

NARRATIVE: CASE EVENT DATE: 20210320
